FAERS Safety Report 7312116-0 (Version None)
Quarter: 2011Q1

REPORT INFORMATION
  Report Type: 
  Country: None (occurrence: None)
  Receive Date: 20110224
  Receipt Date: 20110211
  Transmission Date: 20110831
  Serious: Yes (Other)
  Sender: FDA-Public Use
  Company Number: PHHY2011FR11680

PATIENT
  Age: 61 Year
  Sex: Female

DRUGS (1)
  1. ANASTROZOLE [Suspect]
     Indication: BREAST CANCER
     Dosage: UNK
     Dates: start: 20050601, end: 20051101

REACTIONS (8)
  - RHEUMATOID ARTHRITIS [None]
  - JOINT SWELLING [None]
  - SIALOADENITIS [None]
  - ARTHRALGIA [None]
  - SICCA SYNDROME [None]
  - TENOSYNOVITIS [None]
  - POLYARTHRITIS [None]
  - SYNOVITIS [None]
